FAERS Safety Report 8057646-1 (Version None)
Quarter: 2012Q1

REPORT INFORMATION
  Report Type: 
  Country: None (occurrence: None)
  Receive Date: 20120120
  Receipt Date: 20120111
  Transmission Date: 20120608
  Serious: Yes (Hospitalization, Other)
  Sender: FDA-Public Use
  Company Number: US-BIOGENIDEC-2011BI048688

PATIENT
  Age: 56 Year
  Sex: Male

DRUGS (10)
  1. VESICARE [Concomitant]
  2. CELEBREX [Concomitant]
  3. PERCOCET [Concomitant]
  4. TYSABRI [Suspect]
     Indication: MULTIPLE SCLEROSIS
     Route: 042
     Dates: start: 20091029, end: 20111117
  5. TRAZODONE HCL [Concomitant]
  6. LISINOPRIL [Concomitant]
  7. FENTANYL [Concomitant]
     Route: 062
  8. AMBIEN [Concomitant]
  9. OXYBUTYNIN [Concomitant]
  10. VALIUM [Concomitant]

REACTIONS (4)
  - MULTIPLE SCLEROSIS RELAPSE [None]
  - ESCHERICHIA URINARY TRACT INFECTION [None]
  - ADVERSE REACTION [None]
  - PROGRESSIVE MULTIFOCAL LEUKOENCEPHALOPATHY [None]
